FAERS Safety Report 6302792-3 (Version None)
Quarter: 2009Q3

REPORT INFORMATION
  Report Type: 
  Country: None (occurrence: None)
  Receive Date: 20090810
  Receipt Date: 20090414
  Transmission Date: 20100115
  Serious: No
  Sender: FDA-Public Use
  Company Number: A0778743A

PATIENT
  Sex: Female

DRUGS (1)
  1. ALTABAX [Suspect]
     Indication: SKIN INFECTION
     Route: 061

REACTIONS (3)
  - APPLICATION SITE IRRITATION [None]
  - APPLICATION SITE PRURITUS [None]
  - APPLICATION SITE SWELLING [None]
